FAERS Safety Report 6592815-9 (Version None)
Quarter: 2010Q1

REPORT INFORMATION
  Report Type: 
  Country: None (occurrence: None)
  Receive Date: 20100212
  Receipt Date: 20100203
  Transmission Date: 20100710
  Serious: Yes (Death, Life-Threatening, Hospitalization)
  Sender: FDA-Public Use
  Company Number: A-US2009-25880

PATIENT
  Age: 52 Year
  Sex: Male

DRUGS (3)
  1. TRACLEER [Suspect]
     Indication: PULMONARY ARTERIAL HYPERTENSION
     Dosage: MG, ORAL
     Route: 048
     Dates: start: 20090514, end: 20100121
  2. REVATIO [Concomitant]
  3. COUMADIN [Concomitant]

REACTIONS (3)
  - CARDIAC FAILURE CONGESTIVE [None]
  - PULMONARY ARTERIAL HYPERTENSION [None]
  - PULMONARY THROMBOSIS [None]
